FAERS Safety Report 8506552-4 (Version None)
Quarter: 2012Q3

REPORT INFORMATION
  Report Type: 
  Country: None (occurrence: None)
  Receive Date: 20120712
  Receipt Date: 20120706
  Transmission Date: 20120928
  Serious: Yes (Other)
  Sender: FDA-Public Use
  Company Number: US-JNJFOC-20120703617

PATIENT
  Sex: Female
  Weight: 99.79 kg

DRUGS (11)
  1. NEXIUM [Concomitant]
     Indication: GASTROOESOPHAGEAL REFLUX DISEASE
     Route: 048
  2. REMICADE [Suspect]
     Route: 042
     Dates: start: 20120101
  3. PREDNISONE [Concomitant]
     Indication: RHEUMATOID ARTHRITIS
     Route: 048
  4. LISINOPRIL [Concomitant]
     Route: 048
     Dates: end: 20120101
  5. ASPIRIN [Concomitant]
     Indication: CEREBROVASCULAR ACCIDENT PROPHYLAXIS
     Route: 048
  6. ELAVIL [Concomitant]
     Indication: NEUROPATHY PERIPHERAL
     Route: 048
  7. LISINOPRIL [Concomitant]
     Indication: BLOOD PRESSURE ABNORMAL
     Route: 048
     Dates: start: 20120101
  8. REMICADE [Suspect]
     Indication: RHEUMATOID ARTHRITIS
     Dosage: 3 INFUSIONS ADMINISTERED
     Route: 042
     Dates: start: 20120601
  9. TRAMADOL HCL [Suspect]
     Indication: PAIN
     Route: 048
     Dates: end: 20120101
  10. ELAVIL [Concomitant]
     Indication: DEPRESSION
     Route: 048
  11. LORAZEPAM [Concomitant]
     Indication: DYSTONIA
     Route: 048

REACTIONS (16)
  - HEADACHE [None]
  - INFUSION RELATED REACTION [None]
  - LYMPHADENOPATHY [None]
  - HYPERSENSITIVITY [None]
  - LIP BLISTER [None]
  - SWOLLEN TONGUE [None]
  - AMNESIA [None]
  - SWELLING [None]
  - BLOOD PRESSURE FLUCTUATION [None]
  - WEIGHT INCREASED [None]
  - DYSPNOEA [None]
  - MUSCULAR WEAKNESS [None]
  - DYSTONIA [None]
  - TENDONITIS [None]
  - FIBROMYALGIA [None]
  - PALPITATIONS [None]
